FAERS Safety Report 15074900 (Version 1)
Quarter: 2018Q3

REPORT INFORMATION
  Report Type: Spontaneous
  Country: US (occurrence: US)
  Receive Date: 20180627
  Receipt Date: 20180627
  Transmission Date: 20181010
  Serious: Yes (Hospitalization, Other)
  Sender: FDA-Public Use
  Company Number: US-SAOL THERAPEUTICS-2017SAO01477

PATIENT
  Sex: Male

DRUGS (4)
  1. LIORESAL [Suspect]
     Active Substance: BACLOFEN
     Indication: SPINAL PAIN
     Dosage: 13.02 ?G, \DAY
     Route: 037
  2. UNSPECIFIED ANTICOAGULANTS [Suspect]
     Active Substance: UNSPECIFIED INGREDIENT
     Dosage: UNK
     Route: 048
     Dates: start: 201606
  3. CLONIDINE. [Suspect]
     Active Substance: CLONIDINE
     Dosage: 34.72 ?G, \DAY
     Route: 037
  4. MORPHINE [Suspect]
     Active Substance: MORPHINE
     Dosage: 1.3 MG, \DAY
     Route: 037

REACTIONS (6)
  - Device breakage [None]
  - Medical device site haemorrhage [Unknown]
  - Off label use [None]
  - Drug ineffective for unapproved indication [Unknown]
  - Complication associated with device [Unknown]
  - Device connection issue [None]

NARRATIVE: CASE EVENT DATE: 201606
